FAERS Safety Report 18000046 (Version 2)
Quarter: 2020Q4

REPORT INFORMATION
  Report Type: Spontaneous
  Country: TR (occurrence: TR)
  Receive Date: 20200709
  Receipt Date: 20201008
  Transmission Date: 20210113
  Serious: Yes (Death, Other)
  Sender: FDA-Public Use
  Company Number: TR-BAYER-2020-133794

PATIENT
  Age: 28 Year
  Sex: Female
  Weight: 66 kg

DRUGS (3)
  1. STIVARGA [Suspect]
     Active Substance: REGORAFENIB
     Indication: OSTEOSARCOMA
     Dosage: 40 MG
     Dates: start: 202004, end: 2020
  2. NEXAVAR [Suspect]
     Active Substance: SORAFENIB
     Indication: OSTEOSARCOMA
     Dosage: UNK
     Route: 048
     Dates: start: 20190422, end: 201905
  3. NEXAVAR [Suspect]
     Active Substance: SORAFENIB
     Indication: OSTEOSARCOMA
     Dosage: 600 MG DAILY
     Route: 048
     Dates: start: 2018

REACTIONS (21)
  - Cerebral disorder [None]
  - Loss of consciousness [None]
  - Oral infection [Recovering/Resolving]
  - Bone disorder [None]
  - Tremor [None]
  - Breath odour [Recovering/Resolving]
  - Breath odour [None]
  - Asthenia [Recovering/Resolving]
  - Nasal odour [None]
  - Osteosarcoma [None]
  - Speech disorder [Recovering/Resolving]
  - Diarrhoea [None]
  - Off label use [None]
  - Asthenia [None]
  - Loss of consciousness [Recovering/Resolving]
  - Muscle twitching [None]
  - Off label use [None]
  - Product use in unapproved indication [None]
  - Nasal odour [Recovering/Resolving]
  - Product use in unapproved indication [None]
  - Infection [None]

NARRATIVE: CASE EVENT DATE: 2018
